FAERS Safety Report 12776895 (Version 2)
Quarter: 2016Q3

REPORT INFORMATION
  Report Type: Spontaneous
  Country: US (occurrence: US)
  Receive Date: 20160923
  Receipt Date: 20160929
  Transmission Date: 20161109
  Serious: Yes (Other)
  Sender: FDA-Public Use
  Company Number: US-CELGENEUS-USA-2016094830

PATIENT
  Sex: Female

DRUGS (1)
  1. OTEZLA [Suspect]
     Active Substance: APREMILAST
     Indication: PSORIATIC ARTHROPATHY
     Dosage: 10-20MG TITRATION PACK
     Route: 048
     Dates: start: 20160816

REACTIONS (4)
  - Diarrhoea [Unknown]
  - Vomiting [Unknown]
  - Hallucination [Unknown]
  - Pruritus [Unknown]
